FAERS Safety Report 16820770 (Version 1)
Quarter: 2019Q3

REPORT INFORMATION
  Report Type: Spontaneous
  Country: JP (occurrence: JP)
  Receive Date: 20190918
  Receipt Date: 20190918
  Transmission Date: 20191005
  Serious: Yes (Disabling)
  Sender: FDA-Public Use
  Company Number: JP-BION-008246

PATIENT
  Age: 39 Year
  Sex: Female

DRUGS (3)
  1. VALPROIC ACID. [Suspect]
     Active Substance: VALPROIC ACID
     Indication: MIGRAINE WITHOUT AURA
     Dosage: INCREASED TO 800MG/D IN NOV-2017 AND TO 1000MG/D IN DEC-2017
  2. LOMERIZINE [Suspect]
     Active Substance: LOMERIZINE
     Indication: MIGRAINE WITHOUT AURA
  3. AMITRIPTYLINE [Suspect]
     Active Substance: AMITRIPTYLINE
     Indication: MIGRAINE WITHOUT AURA

REACTIONS (3)
  - Somnolence [Unknown]
  - Drug ineffective for unapproved indication [Not Recovered/Not Resolved]
  - Impaired work ability [Unknown]

NARRATIVE: CASE EVENT DATE: 201805
